FAERS Safety Report 8808913 (Version 1)
Quarter: 2012Q4

REPORT INFORMATION
  Report Type: Spontaneous
  Country: US (occurrence: None)
  Receive Date: 20120920
  Receipt Date: 20120920
  Transmission Date: 20130627
  Serious: Yes (Other)
  Sender: FDA-Public Use
  Company Number: None

PATIENT
  Age: 47 Year
  Sex: Female
  Weight: 72.12 kg

DRUGS (1)
  1. AZATHIOPRINE [Suspect]
     Indication: SCLERITIS
     Dosage: 2 tabs daily
     Dates: start: 20120712, end: 20120720

REACTIONS (1)
  - Alopecia [None]
